FAERS Safety Report 20863405 (Version 2)
Quarter: 2022Q4

REPORT INFORMATION
  Report Type: Report from Study
  Country: US (occurrence: US)
  Receive Date: 20220523
  Receipt Date: 20221210
  Transmission Date: 20230113
  Serious: Yes (Hospitalization, Other)
  Sender: FDA-Public Use
  Company Number: US-TAKEDA-US201938628

PATIENT
  Sex: Female
  Weight: 67.12 kg

DRUGS (21)
  1. HUMAN IMMUNOGLOBULIN G [Suspect]
     Active Substance: HUMAN IMMUNOGLOBULIN G
     Indication: Primary immunodeficiency syndrome
     Dosage: UNK
     Route: 058
  2. HUMAN IMMUNOGLOBULIN G [Suspect]
     Active Substance: HUMAN IMMUNOGLOBULIN G
     Indication: Hypogammaglobulinaemia
     Dosage: 8 MILLIGRAM, 1/WEEK
     Route: 058
     Dates: start: 20210722
  3. HUMAN IMMUNOGLOBULIN G [Suspect]
     Active Substance: HUMAN IMMUNOGLOBULIN G
     Dosage: 7 GRAM, 1/WEEK
     Route: 058
     Dates: start: 20210722
  4. CUVITRU [Suspect]
     Active Substance: HUMAN IMMUNOGLOBULIN G
     Indication: Hypogammaglobulinaemia
     Dosage: 7 GRAM, 1/WEEK
     Route: 058
     Dates: start: 20220916
  5. DIPHENHYDRAMINE [Concomitant]
     Active Substance: DIPHENHYDRAMINE
  6. EPINEPHRINE [Concomitant]
     Active Substance: EPINEPHRINE
  7. FLUTICASONE [Concomitant]
     Active Substance: FLUTICASONE
  8. ESTRADIOL [Concomitant]
     Active Substance: ESTRADIOL
  9. ZYRTEC [Concomitant]
     Active Substance: CETIRIZINE HYDROCHLORIDE
  10. IPRATROPIUM [Concomitant]
     Active Substance: IPRATROPIUM
  11. SINGULAIR [Concomitant]
     Active Substance: MONTELUKAST SODIUM
  12. AZELASTINE [Concomitant]
     Active Substance: AZELASTINE
  13. LISINOPRIL [Concomitant]
     Active Substance: LISINOPRIL
  14. ROSUVASTATIN [Concomitant]
     Active Substance: ROSUVASTATIN
  15. Lmx [Concomitant]
  16. VIBERZI [Concomitant]
     Active Substance: ELUXADOLINE
  17. XOLAIR [Concomitant]
     Active Substance: OMALIZUMAB
  18. FLUTICASONE PROPIONATE [Concomitant]
     Active Substance: FLUTICASONE PROPIONATE
  19. IPRATROPIUM BROMIDE [Concomitant]
     Active Substance: IPRATROPIUM BROMIDE
  20. AZELASTINE HYDROCHLORIDE [Concomitant]
     Active Substance: AZELASTINE HYDROCHLORIDE
  21. ROSUVASTATIN CALCIUM [Concomitant]
     Active Substance: ROSUVASTATIN CALCIUM

REACTIONS (8)
  - Colitis ischaemic [Unknown]
  - Sinus disorder [Unknown]
  - Ear disorder [Unknown]
  - Fatigue [Unknown]
  - Infusion related reaction [Unknown]
  - Sinusitis [Unknown]
  - Infusion site pain [Unknown]
  - Respiratory tract infection [Unknown]
